FAERS Safety Report 21477822 (Version 1)
Quarter: 2022Q4

REPORT INFORMATION
  Report Type: Spontaneous
  Country: FR (occurrence: FR)
  Receive Date: 20221019
  Receipt Date: 20221019
  Transmission Date: 20230113
  Serious: Yes (Hospitalization)
  Sender: FDA-Public Use
  Company Number: None

PATIENT
  Age: 53 Year
  Sex: Male

DRUGS (5)
  1. CERTICAN [Interacting]
     Active Substance: EVEROLIMUS
     Indication: Renal transplant
     Dosage: 1.25 MG, BID
     Route: 048
     Dates: start: 20220818
  2. NEORAL [Interacting]
     Active Substance: CYCLOSPORINE
     Indication: Renal transplant
     Dosage: 100 MG, BID
     Route: 048
     Dates: start: 20220818
  3. COLCHICINE [Suspect]
     Active Substance: COLCHICINE
     Indication: Product used for unknown indication
     Dosage: 0.5 DOSAGE FORM, QD
     Route: 048
     Dates: start: 2022
  4. ZOCOR [Interacting]
     Active Substance: SIMVASTATIN
     Indication: Hypercholesterolaemia
     Dosage: 40 MG, QD
     Route: 065
  5. BACTRIM [Concomitant]
     Active Substance: SULFAMETHOXAZOLE\TRIMETHOPRIM
     Indication: Product used for unknown indication
     Dosage: 1 DOSAGE FORM, QD
     Route: 048

REACTIONS (3)
  - Acute kidney injury [Recovering/Resolving]
  - Accidental overdose [Recovering/Resolving]
  - Rhabdomyolysis [Recovering/Resolving]

NARRATIVE: CASE EVENT DATE: 20220905
